FAERS Safety Report 4985412-X (Version None)
Quarter: 2006Q1

REPORT INFORMATION
  Report Type: 
  Country: None (occurrence: None)
  Receive Date: 20060309
  Receipt Date: 20050926
  Transmission Date: 20060701
  Serious: Yes (Other)
  Sender: FDA-Public Use
  Company Number: 419558

PATIENT
  Sex: Male
  Weight: 3.2 kg

DRUGS (3)
  1. ACCUTANE [Suspect]
     Dates: start: 19980615, end: 19980615
  2. REMICADE [Concomitant]
  3. PREDNISONE TAB [Concomitant]

REACTIONS (1)
  - PREMATURE BABY [None]
